FAERS Safety Report 7186175-2 (Version None)
Quarter: 2010Q4

REPORT INFORMATION
  Report Type: 
  Country: None (occurrence: None)
  Receive Date: 20101222
  Receipt Date: 20101216
  Transmission Date: 20110411
  Serious: Yes (Hospitalization)
  Sender: FDA-Public Use
  Company Number: US-ALLERGAN-1016445US

PATIENT
  Age: 55 Year
  Sex: Female
  Weight: 59.864 kg

DRUGS (5)
  1. BOTOX COSMETIC [Suspect]
     Indication: SKIN WRINKLING
     Dosage: 30 UNITS, SINGLE
     Route: 030
     Dates: start: 20101215, end: 20101215
  2. LIDOCAINE [Suspect]
     Indication: LOCAL ANAESTHESIA
  3. METFORMIN [Concomitant]
  4. SCULPTRA [Suspect]
     Dosage: UNK
  5. SYNTHROID [Concomitant]

REACTIONS (4)
  - ANAPHYLACTIC REACTION [None]
  - CHEST PAIN [None]
  - HEADACHE [None]
  - VISION BLURRED [None]
